FAERS Safety Report 10927943 (Version 1)
Quarter: 2015Q1

REPORT INFORMATION
  Report Type: Spontaneous
  Country: US (occurrence: None)
  Receive Date: 20150316
  Receipt Date: 20150316
  Transmission Date: 20150721
  Serious: Yes (Other)
  Sender: FDA-Public Use
  Company Number: None

PATIENT
  Age: 10 Year
  Sex: Male
  Weight: 36.29 kg

DRUGS (1)
  1. GUANFACINE ER 2 MG ACTAVIS [Suspect]
     Active Substance: GUANFACINE
     Indication: ATTENTION DEFICIT/HYPERACTIVITY DISORDER
     Dosage: 1
     Route: 048
     Dates: start: 20150101, end: 20150312

REACTIONS (2)
  - Product substitution issue [None]
  - Amnesia [None]

NARRATIVE: CASE EVENT DATE: 20150302
